FAERS Safety Report 6583726-3 (Version None)
Quarter: 2010Q1

REPORT INFORMATION
  Report Type: 
  Country: None (occurrence: None)
  Receive Date: 20100216
  Receipt Date: 20100205
  Transmission Date: 20100710
  Serious: Yes (Hospitalization)
  Sender: FDA-Public Use
  Company Number: BG-ROCHE-678658

PATIENT
  Sex: Female
  Weight: 80 kg

DRUGS (7)
  1. TOCILIZUMAB [Suspect]
     Indication: RHEUMATOID ARTHRITIS
     Dosage: TEMPORARILY INTERRUPTED.
     Route: 042
     Dates: start: 20060502, end: 20091209
  2. BLINDED TOCILIZUMAB [Suspect]
     Indication: RHEUMATOID ARTHRITIS
     Dosage: DOSE BLINDED
     Route: 042
  3. METHOTREXATE [Suspect]
     Indication: RHEUMATOID ARTHRITIS
     Route: 048
     Dates: start: 20050401
  4. ACID FOLIC [Concomitant]
     Indication: DRUG USE FOR UNKNOWN INDICATION
     Dosage: DRUG NAME REPORTED AS ACIDIFOLICI.
     Route: 065
     Dates: start: 20051011
  5. ENALAPRIL MALEATE [Concomitant]
     Dosage: DRUG NAME REPORTED AS ENPRIL.
     Dates: start: 20060415, end: 20060707
  6. CORVITOL [Concomitant]
     Dates: start: 20060415, end: 20060706
  7. HYDROCHLOROTHIAZIDE [Concomitant]
     Dates: start: 20060415, end: 20060706

REACTIONS (1)
  - TREMOR [None]
